FAERS Safety Report 9931752 (Version 1)
Quarter: 2014Q1

REPORT INFORMATION
  Report Type: Spontaneous
  Country: BR (occurrence: BR)
  Receive Date: 20140228
  Receipt Date: 20140228
  Transmission Date: 20141002
  Serious: Yes (Other)
  Sender: FDA-Public Use
  Company Number: BR-JNJFOC-20140204766

PATIENT
  Age: 2 Year
  Sex: Male

DRUGS (2)
  1. TOPAMAX [Suspect]
     Indication: AGGRESSION
     Route: 048
  2. TOPAMAX [Suspect]
     Indication: CONVULSION
     Route: 048

REACTIONS (5)
  - Febrile convulsion [Unknown]
  - Body temperature increased [Not Recovered/Not Resolved]
  - Skin exfoliation [Not Recovered/Not Resolved]
  - Anhidrosis [Not Recovered/Not Resolved]
  - Lip exfoliation [Not Recovered/Not Resolved]
